FAERS Safety Report 11471542 (Version 2)
Quarter: 2015Q3

REPORT INFORMATION
  Report Type: Spontaneous
  Country: US (occurrence: US)
  Receive Date: 20150903
  Receipt Date: 20150903
  Transmission Date: 20151125
  Serious: No
  Sender: FDA-Public Use
  Company Number: US-ELI_LILLY_AND_COMPANY-US201203000576

PATIENT
  Age: 40 Year
  Sex: Male

DRUGS (1)
  1. CYMBALTA [Suspect]
     Active Substance: DULOXETINE HYDROCHLORIDE
     Indication: DEPRESSION
     Dosage: UNK, UNKNOWN
     Dates: end: 201202

REACTIONS (8)
  - Paraesthesia [Recovering/Resolving]
  - Balance disorder [Recovering/Resolving]
  - Seizure like phenomena [Recovering/Resolving]
  - Chills [Recovering/Resolving]
  - Presyncope [Recovering/Resolving]
  - Anger [Recovering/Resolving]
  - Drug withdrawal syndrome [Recovering/Resolving]
  - Drug ineffective [Recovered/Resolved]
